FAERS Safety Report 7512579-1 (Version None)
Quarter: 2011Q2

REPORT INFORMATION
  Report Type: 
  Country: None (occurrence: None)
  Receive Date: 20110531
  Receipt Date: 20110518
  Transmission Date: 20111010
  Serious: Yes (Other)
  Sender: FDA-Public Use
  Company Number: JP-ASTRAZENECA-2010SE44605

PATIENT
  Age: 69 Year
  Sex: Female

DRUGS (6)
  1. TELMISARTAN [Concomitant]
  2. EICOSAPENTAENOIC ACID [Concomitant]
  3. OMEPRAZOLE [Suspect]
     Indication: GASTRITIS
     Route: 048
     Dates: start: 20100320, end: 20100913
  4. EZETIMIBE [Concomitant]
  5. BENIDIPINE [Concomitant]
  6. GLIMEPIRIDE [Concomitant]

REACTIONS (1)
  - HYPOKALAEMIA [None]
